FAERS Safety Report 9857980 (Version 3)
Quarter: 2014Q2

REPORT INFORMATION
  Report Type: Spontaneous
  Country: TR (occurrence: TR)
  Receive Date: 20140131
  Receipt Date: 20140527
  Transmission Date: 20141212
  Serious: Yes (Other)
  Sender: FDA-Public Use
  Company Number: TR-VERTEX PHARMACEUTICALS INC-2014-000466

PATIENT
  Sex: 0

DRUGS (4)
  1. INCIVO [Suspect]
     Indication: HEPATITIS C
     Route: 048
  2. INCIVO [Suspect]
     Route: 048
  3. RIBAVIRIN [Suspect]
     Indication: HEPATITIS C
  4. PEG-INTERFERON [Suspect]
     Indication: HEPATITIS C

REACTIONS (6)
  - Hepatitis C [Unknown]
  - Transfusion [Unknown]
  - Rash [Unknown]
  - Anorectal disorder [Unknown]
  - Off label use [Unknown]
  - Drug ineffective [Unknown]
